FAERS Safety Report 8276725-7 (Version None)
Quarter: 2012Q2

REPORT INFORMATION
  Report Type: 
  Country: None (occurrence: None)
  Receive Date: 20120412
  Receipt Date: 20120412
  Transmission Date: 20120825
  Serious: No
  Sender: FDA-Public Use
  Company Number: None

PATIENT
  Age: 68 Year
  Sex: Female
  Weight: 62.595 kg

DRUGS (2)
  1. CORDARONE [Concomitant]
     Indication: ATRIAL FIBRILLATION
     Dosage: ONCE A DAY
     Route: 048
     Dates: start: 20120320, end: 20120411
  2. PRADAXA [Suspect]
     Indication: ATRIAL FIBRILLATION
     Dosage: TWICE A DAY
     Route: 048
     Dates: start: 20120303, end: 20120411

REACTIONS (1)
  - ATRIAL FIBRILLATION [None]
